FAERS Safety Report 16803169 (Version 1)
Quarter: 2019Q3

REPORT INFORMATION
  Report Type: Spontaneous
  Country: US (occurrence: US)
  Receive Date: 20190913
  Receipt Date: 20190913
  Transmission Date: 20191005
  Serious: No
  Sender: FDA-Public Use
  Company Number: US-NOVOPROD-676335

PATIENT
  Age: 60 Year
  Sex: Male

DRUGS (1)
  1. XULTOPHY 100/3.6 [Suspect]
     Active Substance: INSULIN DEGLUDEC\LIRAGLUTIDE
     Indication: DIABETES MELLITUS
     Dosage: UNK
     Route: 058
     Dates: start: 201907

REACTIONS (2)
  - Rash generalised [Unknown]
  - Urticaria [Unknown]

NARRATIVE: CASE EVENT DATE: 201907
